FAERS Safety Report 4673720-1 (Version None)
Quarter: 2005Q2

REPORT INFORMATION
  Report Type: 
  Country: None (occurrence: None)
  Receive Date: 20050523
  Receipt Date: 20050509
  Transmission Date: 20051028
  Serious: Yes (Other)
  Sender: FDA-Public Use
  Company Number: 2005065489

PATIENT
  Age: 69 Year
  Sex: Male
  Weight: 81.6475 kg

DRUGS (7)
  1. ZOLOFT [Suspect]
     Indication: ANXIETY
     Dosage: 150 MG (1 IN 1 D), ORAL
     Route: 048
     Dates: start: 20010901, end: 20031101
  2. MIRAPEX [Suspect]
     Indication: RESTLESS LEGS SYNDROME
     Dosage: UNKNOWN
     Route: 065
     Dates: start: 20000101
  3. TEMAZEPAM [Concomitant]
  4. LORAZEPAM [Concomitant]
  5. COUMADIN [Concomitant]
  6. AMOXICILLIN [Concomitant]
  7. VITAMINS (VITAMINS) [Concomitant]

REACTIONS (8)
  - ANXIETY [None]
  - DEPRESSION [None]
  - DRUG DEPENDENCE [None]
  - EMOTIONAL DISORDER [None]
  - NASOPHARYNGITIS [None]
  - PROSTATE CANCER [None]
  - SURGERY [None]
  - URINARY INCONTINENCE [None]
